FAERS Safety Report 6881458-5 (Version None)
Quarter: 2010Q3

REPORT INFORMATION
  Report Type: 
  Country: None (occurrence: None)
  Receive Date: 20100728
  Receipt Date: 20100728
  Transmission Date: 20110219
  Serious: Yes (Hospitalization)
  Sender: FDA-Public Use
  Company Number: None

PATIENT
  Age: 63 Year
  Sex: Male

DRUGS (2)
  1. WARFARIN SODIUM [Suspect]
     Indication: DEEP VEIN THROMBOSIS
     Dates: start: 20100618, end: 20100625
  2. LEPIRUDIN [Suspect]
     Dates: start: 20100618, end: 20100625

REACTIONS (3)
  - FEELING COLD [None]
  - HYPOAESTHESIA [None]
  - PAIN IN EXTREMITY [None]
